FAERS Safety Report 16025846 (Version 2)
Quarter: 2019Q3

REPORT INFORMATION
  Report Type: Spontaneous
  Country: CA (occurrence: CA)
  Receive Date: 20190302
  Receipt Date: 20190822
  Transmission Date: 20191004
  Serious: Yes (Hospitalization, Other)
  Sender: FDA-Public Use
  Company Number: CA-SUN PHARMACEUTICAL INDUSTRIES LTD-2019R1-200589

PATIENT
  Age: 24 Year
  Sex: Male

DRUGS (7)
  1. TRIMETHOPRIM/SULFAMETHOXAZOLE [Concomitant]
     Active Substance: SULFAMETHOXAZOLE\TRIMETHOPRIM
     Indication: ANTIFUNGAL PROPHYLAXIS
     Dosage: UNK
     Route: 065
  2. AZITHROMYCIN ANHYDROUS. [Concomitant]
     Active Substance: AZITHROMYCIN ANHYDROUS
     Indication: EVIDENCE BASED TREATMENT
     Dosage: UNK
     Route: 065
  3. CYCLOPHOSPHAMIDE. [Suspect]
     Active Substance: CYCLOPHOSPHAMIDE
     Indication: ANTI-GLOMERULAR BASEMENT MEMBRANE ANTIBODY
     Dosage: 1.2 GRAM, WEEKLY
     Route: 042
  4. CEFTRIAXONE. [Concomitant]
     Active Substance: CEFTRIAXONE
     Indication: EVIDENCE BASED TREATMENT
     Dosage: UNK
     Route: 065
  5. PREDNISONE. [Suspect]
     Active Substance: PREDNISONE
     Indication: ANTI-GLOMERULAR BASEMENT MEMBRANE ANTIBODY
     Dosage: 60 MILLIGRAM, DAILY
     Route: 065
  6. METHYLPREDNISOLONE. [Suspect]
     Active Substance: METHYLPREDNISOLONE
     Indication: ANTI-GLOMERULAR BASEMENT MEMBRANE ANTIBODY
     Dosage: 500 MG
     Route: 042
  7. METHYLPREDNISOLONE. [Suspect]
     Active Substance: METHYLPREDNISOLONE
     Indication: DISEASE RECURRENCE

REACTIONS (3)
  - Pulmonary haemorrhage [Recovering/Resolving]
  - Pneumonia cytomegaloviral [Unknown]
  - Drug resistance [Unknown]
